FAERS Safety Report 7439134-6 (Version None)
Quarter: 2011Q2

REPORT INFORMATION
  Report Type: 
  Country: None (occurrence: None)
  Receive Date: 20110427
  Receipt Date: 20100310
  Transmission Date: 20111010
  Serious: No
  Sender: FDA-Public Use
  Company Number: US-BAYER-201016802NA

PATIENT
  Sex: Female

DRUGS (2)
  1. YAZ [Suspect]
     Dosage: UNK
     Dates: end: 20091001
  2. YAZ [Suspect]
     Dosage: UNK
     Dates: start: 20100301

REACTIONS (2)
  - NO ADVERSE EVENT [None]
  - MENSTRUATION IRREGULAR [None]
